FAERS Safety Report 14804181 (Version 2)
Quarter: 2018Q2

REPORT INFORMATION
  Report Type: Report from Study
  Country: GB (occurrence: IT)
  Receive Date: 20180425
  Receipt Date: 20180525
  Transmission Date: 20180711
  Serious: Yes (Hospitalization, Other)
  Sender: FDA-Public Use
  Company Number: GB-REGENERON PHARMACEUTICALS, INC.-2018-22067

PATIENT

DRUGS (1)
  1. EYLEA [Suspect]
     Active Substance: AFLIBERCEPT
     Indication: RETINAL NEOVASCULARISATION
     Dosage: 2 MG, UNK
     Route: 031

REACTIONS (3)
  - Retinal haemorrhage [Unknown]
  - Detachment of retinal pigment epithelium [Unknown]
  - Choroidal haemorrhage [Unknown]

NARRATIVE: CASE EVENT DATE: 20180310
